FAERS Safety Report 4414110-6 (Version None)
Quarter: 2004Q3

REPORT INFORMATION
  Report Type: 
  Country: None (occurrence: None)
  Receive Date: 20040728
  Receipt Date: 20040715
  Transmission Date: 20050211
  Serious: Yes (Hospitalization)
  Sender: FDA-Public Use
  Company Number: 2004CG01394

PATIENT
  Age: 73 Year
  Sex: Male

DRUGS (9)
  1. ZESTRIL [Suspect]
  2. OMEPRAZOLE [Suspect]
  3. ASPEGIC 325 [Suspect]
  4. AMLOR [Suspect]
  5. ZOLOFT [Suspect]
  6. TAHOR [Suspect]
  7. BISOPROLOL FUMARATE [Suspect]
  8. LASIX [Suspect]
  9. UMULINE [Suspect]

REACTIONS (5)
  - ACUTE RESPIRATORY DISTRESS SYNDROME [None]
  - BRONCHIAL INFECTION [None]
  - INTERSTITIAL LUNG DISEASE [None]
  - PULMONARY OEDEMA [None]
  - SUPERINFECTION [None]
